FAERS Safety Report 6229479-X (Version None)
Quarter: 2009Q2

REPORT INFORMATION
  Report Type: 
  Country: None (occurrence: None)
  Receive Date: 20090615
  Receipt Date: 20090603
  Transmission Date: 20091009
  Serious: Yes (Hospitalization)
  Sender: FDA-Public Use
  Company Number: A0766656A

PATIENT
  Age: 73 Year
  Sex: Male
  Weight: 79.5 kg

DRUGS (2)
  1. AVANDIA [Suspect]
     Dosage: 4MG PER DAY
     Route: 048
     Dates: start: 20040101, end: 20050301
  2. CELEBREX [Concomitant]

REACTIONS (6)
  - CARDIAC FAILURE CONGESTIVE [None]
  - COGNITIVE DISORDER [None]
  - DIABETES MELLITUS [None]
  - FALL [None]
  - MYOCARDIAL INFARCTION [None]
  - RESPIRATORY ARREST [None]
